FAERS Safety Report 4941025-7 (Version None)
Quarter: 2006Q1

REPORT INFORMATION
  Report Type: 
  Country: None (occurrence: None)
  Receive Date: 20060313
  Receipt Date: 20060303
  Transmission Date: 20060701
  Serious: Yes (Hospitalization)
  Sender: FDA-Public Use
  Company Number: GB-AVENTIS-200611437EU

PATIENT
  Age: 79 Year
  Sex: Male

DRUGS (4)
  1. FUROSEMIDE [Suspect]
     Indication: CARDIAC FAILURE CONGESTIVE
  2. IBUPROFEN [Suspect]
     Indication: OSTEOARTHRITIS
  3. DIGOXIN [Concomitant]
     Indication: CARDIAC FAILURE CONGESTIVE
  4. IS-5-MN [Concomitant]
     Indication: CARDIAC FAILURE CONGESTIVE

REACTIONS (6)
  - ASCITES [None]
  - BLOOD CREATININE INCREASED [None]
  - BLOOD UREA INCREASED [None]
  - CARDIAC FAILURE [None]
  - CARDIAC FAILURE CONGESTIVE [None]
  - CONDITION AGGRAVATED [None]
